FAERS Safety Report 6912600-5 (Version None)
Quarter: 2010Q3

REPORT INFORMATION
  Report Type: 
  Country: None (occurrence: None)
  Receive Date: 20100806
  Receipt Date: 20080826
  Transmission Date: 20110219
  Serious: Yes (Other)
  Sender: FDA-Public Use
  Company Number: US-PFIZER INC-2008052608

PATIENT
  Sex: Female
  Weight: 59 kg

DRUGS (4)
  1. VFEND [Suspect]
     Indication: FUNGAL INFECTION
     Route: 048
     Dates: start: 20080610, end: 20080615
  2. ASPIRINE [Concomitant]
  3. VYTORIN [Concomitant]
  4. ATENOLOL [Concomitant]

REACTIONS (8)
  - ANXIETY [None]
  - BLOOD PRESSURE INCREASED [None]
  - CHROMATOPSIA [None]
  - DIZZINESS [None]
  - NAUSEA [None]
  - NERVOUSNESS [None]
  - PHOTOPHOBIA [None]
  - VOMITING [None]
